FAERS Safety Report 8436323-9 (Version None)
Quarter: 2012Q2

REPORT INFORMATION
  Report Type: 
  Country: None (occurrence: None)
  Receive Date: 20120614
  Receipt Date: 20120601
  Transmission Date: 20120825
  Serious: Yes (Hospitalization, Other)
  Sender: FDA-Public Use
  Company Number: US-ELI_LILLY_AND_COMPANY-US201206000966

PATIENT
  Sex: Male

DRUGS (13)
  1. ASPIRIN [Concomitant]
  2. LEVEMIR [Concomitant]
     Dosage: 22 IU/U
     Dates: start: 20110306
  3. LEVEMIR [Concomitant]
     Indication: TYPE 2 DIABETES MELLITUS
     Dosage: 24 IU
     Dates: end: 20110306
  4. PRAVASTAN [Concomitant]
  5. CARVEDILOL [Concomitant]
     Dosage: UNK
     Dates: start: 20110117
  6. NOVORAPID [Concomitant]
     Indication: TYPE 2 DIABETES MELLITUS
     Dosage: 4 IU
  7. CYMBALTA [Suspect]
     Dosage: UNK, UNK
  8. PLACEBO [Concomitant]
     Dosage: UNK
     Dates: start: 20110303, end: 20120131
  9. NOVORAPID [Concomitant]
     Dosage: 6 IU
     Dates: start: 20110818
  10. SAXAGLIPTIN [Concomitant]
     Indication: TYPE 2 DIABETES MELLITUS
     Dosage: UNK
     Dates: start: 20110303, end: 20120131
  11. CYMBALTA [Suspect]
     Dosage: UNK, UNK
     Dates: end: 20120206
  12. VITAMIN B-12 [Concomitant]
     Dosage: UNK
     Dates: start: 20111115
  13. MONOLONG [Concomitant]
     Dosage: UNK
     Dates: start: 20120201

REACTIONS (8)
  - BILIRUBIN CONJUGATED [None]
  - ALANINE AMINOTRANSFERASE INCREASED [None]
  - BLOOD ALKALINE PHOSPHATASE INCREASED [None]
  - CARDIAC FAILURE CONGESTIVE [None]
  - BLOOD BILIRUBIN INCREASED [None]
  - ASPARTATE AMINOTRANSFERASE INCREASED [None]
  - GAMMA-GLUTAMYLTRANSFERASE INCREASED [None]
  - PNEUMONIA [None]
